FAERS Safety Report 9757082 (Version 1)
Quarter: 2013Q4

REPORT INFORMATION
  Report Type: Spontaneous
  Country: US (occurrence: US)
  Receive Date: 20131213
  Receipt Date: 20131213
  Transmission Date: 20140711
  Serious: Yes (Hospitalization, Other)
  Sender: FDA-Public Use
  Company Number: US-GILEAD-2013-0089880

PATIENT
  Sex: Female

DRUGS (2)
  1. LETAIRIS [Suspect]
     Indication: PULMONARY HYPERTENSION
     Dosage: 10 MG, QD
     Route: 048
     Dates: start: 20130131, end: 20131125
  2. TYVASO [Concomitant]
     Indication: PULMONARY HYPERTENSION
     Dates: start: 20130131

REACTIONS (2)
  - Brain natriuretic peptide increased [Unknown]
  - Weight increased [Unknown]
